FAERS Safety Report 9403193 (Version 1)
Quarter: 2013Q3

REPORT INFORMATION
  Report Type: Spontaneous
  Country: BR (occurrence: BR)
  Receive Date: 20130716
  Receipt Date: 20130716
  Transmission Date: 20140515
  Serious: Yes (Other)
  Sender: FDA-Public Use
  Company Number: BR-ELI_LILLY_AND_COMPANY-BR201307003985

PATIENT
  Age: 9 Year
  Sex: Male
  Weight: 26.5 kg

DRUGS (2)
  1. HUMALOG [Suspect]
     Indication: TYPE 1 DIABETES MELLITUS
     Dosage: UNK UNK, PRN
     Route: 058
     Dates: start: 201006
  2. LANTUS [Concomitant]
     Dosage: 3 IU, EACH MORNING
     Route: 065
     Dates: start: 201302

REACTIONS (3)
  - Hyperglycaemia [Not Recovered/Not Resolved]
  - Asthma [Not Recovered/Not Resolved]
  - Hunger [Not Recovered/Not Resolved]
